FAERS Safety Report 5388498-6 (Version None)
Quarter: 2007Q3

REPORT INFORMATION
  Report Type: 
  Country: None (occurrence: None)
  Receive Date: 20070716
  Receipt Date: 20070711
  Transmission Date: 20080115
  Serious: Yes (Hospitalization)
  Sender: FDA-Public Use
  Company Number: US-ELI_LILLY_AND_COMPANY-US200707002754

PATIENT
  Age: 70 Year
  Sex: Female

DRUGS (13)
  1. BYETTA [Suspect]
     Indication: TYPE 2 DIABETES MELLITUS
     Dosage: 5 UG, 2/D
     Route: 058
     Dates: start: 20070520, end: 20070501
  2. BYETTA [Suspect]
     Dosage: 10 UG, 2/D
     Route: 058
     Dates: start: 20070620
  3. AMARYL [Concomitant]
     Dosage: UNK, UNKNOWN
     Dates: end: 20070521
  4. METFORMIN HCL [Concomitant]
     Dosage: UNK, UNKNOWN
  5. MOBIC [Concomitant]
     Dosage: UNK, UNKNOWN
  6. LIPITOR [Concomitant]
     Dosage: UNK, UNKNOWN
  7. ALTACE [Concomitant]
     Dosage: UNK, UNKNOWN
  8. EVISTA [Concomitant]
     Dosage: UNK, UNKNOWN
  9. ALDACTONE [Concomitant]
     Dosage: UNK, UNKNOWN
  10. MAXZIDE [Concomitant]
     Dosage: UNK, UNKNOWN
  11. CARDIZEM [Concomitant]
     Dosage: UNK, UNKNOWN
  12. TIKOSYN [Concomitant]
     Dosage: UNK, UNKNOWN
  13. ASPIRIN [Concomitant]
     Dosage: 81 UNK, UNKNOWN

REACTIONS (2)
  - DIVERTICULITIS [None]
  - NAUSEA [None]
